FAERS Safety Report 8374084-2 (Version None)
Quarter: 2012Q2

REPORT INFORMATION
  Report Type: 
  Country: None (occurrence: None)
  Receive Date: 20120518
  Receipt Date: 20120518
  Transmission Date: 20120825
  Serious: Yes (Other)
  Sender: FDA-Public Use
  Company Number: None

PATIENT
  Age: 23 Year
  Sex: Male
  Weight: 61.2356 kg

DRUGS (1)
  1. CYMBALTA [Suspect]
     Indication: MAJOR DEPRESSION
     Dosage: 1 X DAY PO
     Route: 048
     Dates: start: 20120417, end: 20120427

REACTIONS (3)
  - CONDITION AGGRAVATED [None]
  - SUICIDAL IDEATION [None]
  - HYPERSOMNIA [None]
